FAERS Safety Report 7112742-8 (Version None)
Quarter: 2010Q4

REPORT INFORMATION
  Report Type: 
  Country: None (occurrence: None)
  Receive Date: 20101119
  Receipt Date: 20101109
  Transmission Date: 20110411
  Serious: Yes (Hospitalization, Other)
  Sender: FDA-Public Use
  Company Number: FR-SOLVAY-00308002925

PATIENT
  Age: 25933 Day
  Sex: Male

DRUGS (5)
  1. SUNITINIB MALATE [Suspect]
     Indication: RENAL CANCER
     Dosage: DAILY DOSE: 50 MILLIGRAM(S)
     Route: 048
     Dates: start: 20051031, end: 20060305
  2. SUNITINIB MALATE [Suspect]
     Dosage: DAILY DOSE: 37.5 MILLIGRAM(S)
     Route: 048
     Dates: start: 20060321, end: 20060407
  3. SUNITINIB MALATE [Suspect]
     Dosage: DAILY DOSE: 25 MILLIGRAM(S)
     Route: 048
     Dates: start: 20060908
  4. CREON [Suspect]
     Indication: PRODUCT USED FOR UNKNOWN INDICATION
     Dosage: DAILY DOSE:  UNKNOWN
     Route: 065
     Dates: start: 20061030, end: 20061102
  5. CREON [Suspect]
     Dosage: DAILY DOSE:  UNKNOWN
     Route: 065
     Dates: start: 20061104, end: 20070120

REACTIONS (3)
  - ABDOMINAL PAIN [None]
  - ASTHENIA [None]
  - VOMITING [None]
